FAERS Safety Report 15090275 (Version 1)
Quarter: 2018Q2

REPORT INFORMATION
  Report Type: Spontaneous
  Country: US (occurrence: US)
  Receive Date: 20180629
  Receipt Date: 20180629
  Transmission Date: 20180711
  Serious: No
  Sender: FDA-Public Use
  Company Number: US-009507513-1806USA009184

PATIENT
  Age: 56 Year
  Sex: Female

DRUGS (4)
  1. CELESTONE SOLUSPAN [Suspect]
     Active Substance: BETAMETHASONE ACETATE\BETAMETHASONE SODIUM PHOSPHATE
     Indication: OSTEOARTHRITIS
     Dosage: 12 MG
     Route: 014
  2. MELOXICAM. [Concomitant]
     Active Substance: MELOXICAM
     Indication: OSTEOARTHRITIS
     Dosage: 15 MG DAILY
  3. LIDOCAINE. [Concomitant]
     Active Substance: LIDOCAINE
     Indication: OSTEOARTHRITIS
     Dosage: 4ML, PRESERVATIVE-FREE
     Route: 014
  4. BUPIVACAINE. [Concomitant]
     Active Substance: BUPIVACAINE
     Indication: OSTEOARTHRITIS
     Dosage: 4ML, PRESERVATIVE-FREE
     Route: 014

REACTIONS (1)
  - Vomiting [Recovered/Resolved]
